FAERS Safety Report 14473399 (Version 1)
Quarter: 2018Q1

REPORT INFORMATION
  Report Type: Spontaneous
  Country: US (occurrence: US)
  Receive Date: 20180201
  Receipt Date: 20180201
  Transmission Date: 20180509
  Serious: Yes (Hospitalization, Other)
  Sender: FDA-Public Use
  Company Number: US-WEST-WARD PHARMACEUTICALS CORP.-US-H14001-18-00647

PATIENT
  Age: 29 Year
  Sex: Male

DRUGS (1)
  1. VALPROIC ACID. [Suspect]
     Active Substance: VALPROIC ACID
     Indication: AFFECTIVE DISORDER
     Dosage: ()
     Route: 065

REACTIONS (9)
  - Toxicity to various agents [Unknown]
  - Hypocalcaemia [Unknown]
  - Hypernatraemia [Unknown]
  - Mental status changes [Recovering/Resolving]
  - Hyperkalaemia [Unknown]
  - Anion gap increased [Unknown]
  - Hyperammonaemia [Unknown]
  - Lactic acidosis [Unknown]
  - Overdose [Recovering/Resolving]
